FAERS Safety Report 22685417 (Version 2)
Quarter: 2024Q2

REPORT INFORMATION
  Report Type: Other
  Country: IN (occurrence: None)
  Receive Date: 20230710
  Receipt Date: 20240611
  Transmission Date: 20240717
  Serious: Yes (Other)
  Sender: FDA-Public Use
  Company Number: IN-ROCHE-3315711

PATIENT
  Age: 60 Year
  Sex: Male
  Weight: 66.7 kg

DRUGS (1)
  1. TECENTRIQ [Suspect]
     Active Substance: ATEZOLIZUMAB
     Indication: Hepatocellular carcinoma
     Route: 042
     Dates: start: 20221006

REACTIONS (5)
  - Urinary tract infection [Unknown]
  - Asthenia [Unknown]
  - Off label use [Unknown]
  - Drug intolerance [Unknown]
  - Disease progression [Unknown]

NARRATIVE: CASE EVENT DATE: 20221006
